FAERS Safety Report 5723615-7 (Version None)
Quarter: 2008Q2

REPORT INFORMATION
  Report Type: 
  Country: None (occurrence: None)
  Receive Date: 20080425
  Receipt Date: 20080303
  Transmission Date: 20081010
  Serious: Yes (Other)
  Sender: FDA-Public Use
  Company Number: 2008-BP-03240BP

PATIENT

DRUGS (1)
  1. APTIVUS [Suspect]
     Dosage: (SEE TEXT,240MG/100MG)

REACTIONS (1)
  - HEPATOTOXICITY [None]
